FAERS Safety Report 11401137 (Version 1)
Quarter: 2015Q3

REPORT INFORMATION
  Report Type: Spontaneous
  Country: IN (occurrence: IN)
  Receive Date: 20150820
  Receipt Date: 20150820
  Transmission Date: 20151125
  Serious: Yes (Other)
  Sender: FDA-Public Use
  Company Number: IN-BAUSCH-BL-2015-019763

PATIENT
  Age: 15 Year
  Sex: Female

DRUGS (4)
  1. D-PENICILLAMINE [Suspect]
     Active Substance: PENICILLAMINE
     Indication: HEPATO-LENTICULAR DEGENERATION
     Route: 065
  2. D-PENICILLAMINE [Suspect]
     Active Substance: PENICILLAMINE
     Route: 065
  3. D-PENICILLAMINE [Suspect]
     Active Substance: PENICILLAMINE
     Route: 065
  4. ZINC ACETATE [Concomitant]
     Active Substance: ZINC ACETATE
     Indication: HEPATO-LENTICULAR DEGENERATION
     Route: 065

REACTIONS (3)
  - Skin degenerative disorder [Recovering/Resolving]
  - Dystonia [Unknown]
  - Hypochromic anaemia [Unknown]
